FAERS Safety Report 9124319 (Version 1)
Quarter: 2013Q1

REPORT INFORMATION
  Report Type: Spontaneous
  Country: US (occurrence: US)
  Receive Date: 20130116
  Receipt Date: 20130116
  Transmission Date: 20140127
  Serious: Yes (Hospitalization, Other)
  Sender: FDA-Public Use
  Company Number: US-009507513-1301USA003700

PATIENT
  Age: 44 Year
  Sex: Female

DRUGS (4)
  1. SINGULAIR [Suspect]
     Indication: ASTHMA
     Route: 065
  2. XOLAIR [Suspect]
     Route: 065
  3. ATMADISC [Suspect]
     Dosage: 2 PUFFS, BID
     Route: 055
  4. BEROTEC [Concomitant]
     Route: 055

REACTIONS (4)
  - Laryngitis [Unknown]
  - Epiglottitis [Unknown]
  - Dysphonia [Unknown]
  - Cough [Unknown]
